FAERS Safety Report 9294777 (Version 1)
Quarter: 2013Q2

REPORT INFORMATION
  Report Type: Spontaneous
  Country: ES (occurrence: ES)
  Receive Date: 20130517
  Receipt Date: 20130517
  Transmission Date: 20140414
  Serious: Yes (Other)
  Sender: FDA-Public Use
  Company Number: ES-MERCK-1305ESP008925

PATIENT
  Age: 5 Year
  Sex: Male

DRUGS (3)
  1. AERIUS [Suspect]
     Indication: HYPERSENSITIVITY
     Dosage: 5 ML, QD
     Route: 048
     Dates: start: 201303, end: 20130308
  2. AERIUS [Suspect]
     Dosage: 5 ML, QD
     Route: 048
     Dates: start: 2012, end: 2012
  3. AERIUS [Suspect]
     Dosage: 5 ML, QD
     Route: 048
     Dates: start: 20130513, end: 20130513

REACTIONS (3)
  - Migraine [Recovered/Resolved]
  - Headache [Recovered/Resolved]
  - Prescribed overdose [Unknown]
